FAERS Safety Report 23114436 (Version 3)
Quarter: 2023Q4

REPORT INFORMATION
  Report Type: Report from Study
  Country: US (occurrence: US)
  Receive Date: 20231027
  Receipt Date: 20231208
  Transmission Date: 20240110
  Serious: Yes (Other)
  Sender: FDA-Public Use
  Company Number: US-UCBSA-2023051078

PATIENT
  Age: 2 Year
  Sex: Female

DRUGS (2)
  1. FINTEPLA [Suspect]
     Active Substance: FENFLURAMINE
     Indication: Lennox-Gastaut syndrome
     Dosage: 0.7 MILLILITER, 2X/DAY (BID) FOR 7 DAYS THEN 1.4 ML BID FOR 7 DAYS THEN 2.4 ML BID THERAFTER
     Dates: start: 20231009, end: 202311
  2. FINTEPLA [Suspect]
     Active Substance: FENFLURAMINE
     Dosage: 2.4 MILLILITER, 2X/DAY (BID)
     Dates: start: 202311

REACTIONS (5)
  - Seizure [Recovering/Resolving]
  - Status epilepticus [Not Recovered/Not Resolved]
  - Constipation [Not Recovered/Not Resolved]
  - Somnolence [Not Recovered/Not Resolved]
  - Drug titration error [Unknown]

NARRATIVE: CASE EVENT DATE: 20231001
